FAERS Safety Report 7055788-0 (Version None)
Quarter: 2010Q4

REPORT INFORMATION
  Report Type: 
  Country: None (occurrence: None)
  Receive Date: 20101018
  Receipt Date: 20100930
  Transmission Date: 20110411
  Serious: Yes (Other)
  Sender: FDA-Public Use
  Company Number: DSA_44038_2010

PATIENT
  Sex: Male

DRUGS (2)
  1. ATIVAN [Suspect]
     Indication: SURGERY
     Dosage: (DF)
  2. FLOSEAL [Suspect]
     Indication: SURGERY
     Dosage: (DF)

REACTIONS (3)
  - ANAPHYLACTIC SHOCK [None]
  - PROCEDURAL COMPLICATION [None]
  - REACTION TO DRUG EXCIPIENTS [None]
